FAERS Safety Report 4767716-9 (Version None)
Quarter: 2005Q3

REPORT INFORMATION
  Report Type: 
  Country: None (occurrence: None)
  Receive Date: 20050912
  Receipt Date: 20050830
  Transmission Date: 20060218
  Serious: Yes (Hospitalization)
  Sender: FDA-Public Use
  Company Number: ST-2005-008590

PATIENT
  Age: 64 Year
  Sex: Female

DRUGS (6)
  1. OLMETEC [Suspect]
     Indication: HYPERTENSION
     Dosage: 20 MG DAILY PO
     Route: 048
     Dates: start: 20050516, end: 20050830
  2. NORVASC [Concomitant]
  3. LASIC   /SCH/ [Concomitant]
  4. URSODIOL [Concomitant]
  5. PROHEPARUM [Concomitant]
  6. ARGAMATE [Concomitant]

REACTIONS (2)
  - GRANULOCYTOPENIA [None]
  - HEPATITIS C [None]
